FAERS Safety Report 7522328-9 (Version None)
Quarter: 2011Q2

REPORT INFORMATION
  Report Type: 
  Country: None (occurrence: None)
  Receive Date: 20110603
  Receipt Date: 20110520
  Transmission Date: 20111010
  Serious: Yes (Other)
  Sender: FDA-Public Use
  Company Number: PHHY2011CA38509

PATIENT
  Sex: Female

DRUGS (1)
  1. CLOZARIL [Suspect]
     Dates: start: 20070727, end: 20110428

REACTIONS (3)
  - HYPONATRAEMIA [None]
  - TOXICITY TO VARIOUS AGENTS [None]
  - DELIRIUM [None]
